FAERS Safety Report 12542982 (Version 1)
Quarter: 2016Q3

REPORT INFORMATION
  Report Type: Spontaneous
  Country: JP (occurrence: JP)
  Receive Date: 20160710
  Receipt Date: 20160710
  Transmission Date: 20161109
  Serious: Yes (Other)
  Sender: FDA-Public Use
  Company Number: PHJP2016JP019008

PATIENT
  Age: 44 Year
  Sex: Male

DRUGS (6)
  1. SPRYCEL [Concomitant]
     Active Substance: DASATINIB
     Indication: CHRONIC MYELOID LEUKAEMIA
     Dosage: 100 OT, QD
     Route: 048
     Dates: start: 20150511, end: 20151227
  2. BOSULIF [Suspect]
     Active Substance: BOSUTINIB MONOHYDRATE
     Dosage: 600 MG, QD
     Route: 048
     Dates: start: 20151106, end: 20160415
  3. BOSULIF [Suspect]
     Active Substance: BOSUTINIB MONOHYDRATE
     Dosage: 500 MG, QD
     Route: 048
     Dates: start: 20150924, end: 20151105
  4. TASIGNA [Suspect]
     Active Substance: NILOTINIB
     Indication: CHRONIC MYELOID LEUKAEMIA
     Dosage: 400 MG, BID
     Route: 048
     Dates: start: 20121228, end: 20150827
  5. BOSULIF [Suspect]
     Active Substance: BOSUTINIB MONOHYDRATE
     Dosage: 400 MG, QD
     Route: 048
     Dates: start: 20150911, end: 20150924
  6. BOSULIF [Suspect]
     Active Substance: BOSUTINIB MONOHYDRATE
     Indication: CHRONIC MYELOID LEUKAEMIA
     Dosage: 300 MG, QD
     Route: 048
     Dates: start: 20150828, end: 20150910

REACTIONS (12)
  - Lymphocyte percentage decreased [Recovered/Resolved]
  - Eosinophil percentage decreased [Recovered/Resolved]
  - Surfactant protein increased [Unknown]
  - Monocyte percentage increased [Unknown]
  - Neutrophil percentage increased [Unknown]
  - White blood cell count decreased [Unknown]
  - Cough [Recovering/Resolving]
  - Cell marker increased [Unknown]
  - Interstitial lung disease [Not Recovered/Not Resolved]
  - Lymphocyte percentage decreased [Recovered/Resolved]
  - Monocyte percentage increased [Recovered/Resolved]
  - Blood lactate dehydrogenase increased [Recovered/Resolved]

NARRATIVE: CASE EVENT DATE: 20160115
